FAERS Safety Report 9201850 (Version 1)
Quarter: 2013Q2

REPORT INFORMATION
  Report Type: Spontaneous
  Country: CH (occurrence: CH)
  Receive Date: 20130401
  Receipt Date: 20130401
  Transmission Date: 20140414
  Serious: Yes (Hospitalization)
  Sender: FDA-Public Use
  Company Number: CH-ELI_LILLY_AND_COMPANY-CH201303008173

PATIENT
  Age: 70 Year
  Sex: Male

DRUGS (2)
  1. ALIMTA [Suspect]
     Indication: MESOTHELIOMA
     Dosage: 920 MG, UNK
  2. CISPLATIN [Concomitant]

REACTIONS (1)
  - Rhabdomyolysis [Unknown]
